FAERS Safety Report 16404661 (Version 1)
Quarter: 2019Q2

REPORT INFORMATION
  Report Type: Spontaneous
  Country: US (occurrence: US)
  Receive Date: 20190607
  Receipt Date: 20190607
  Transmission Date: 20190711
  Serious: No
  Sender: FDA-Public Use
  Company Number: US-GLAXOSMITHKLINE-US2019101798

PATIENT
  Sex: Female

DRUGS (1)
  1. BENLYSTA [Suspect]
     Active Substance: BELIMUMAB
     Indication: PRODUCT USED FOR UNKNOWN INDICATION
     Dosage: 400 MG, CYC
     Route: 043

REACTIONS (4)
  - Joint swelling [Recovered/Resolved]
  - Fatigue [Recovered/Resolved]
  - Therapeutic response unexpected [Unknown]
  - Product dose omission [Unknown]
